FAERS Safety Report 5079983-5 (Version None)
Quarter: 2006Q3

REPORT INFORMATION
  Report Type: 
  Country: None (occurrence: None)
  Receive Date: 20060815
  Receipt Date: 20060804
  Transmission Date: 20061208
  Serious: Yes (Hospitalization)
  Sender: FDA-Public Use
  Company Number: US-JNJFOC-20060801564

PATIENT
  Sex: Female
  Weight: 134.72 kg

DRUGS (7)
  1. DURAGESIC-100 [Suspect]
     Indication: PAIN
     Route: 062
  2. NORCO [Concomitant]
     Indication: PAIN
     Dosage: DOSE: 10/325MG
     Route: 048
  3. NEXIUM [Concomitant]
     Indication: GASTROOESOPHAGEAL REFLUX DISEASE
     Route: 048
  4. LYRICA [Concomitant]
     Indication: PAIN
     Route: 048
  5. PLAQUENIL [Concomitant]
     Route: 048
  6. SKELAXIN [Concomitant]
     Indication: MUSCLE RELAXANT THERAPY
     Route: 048
  7. HEMOCYTE PLUS [Concomitant]
     Indication: MINERAL SUPPLEMENTATION
     Route: 048

REACTIONS (4)
  - CONSTIPATION [None]
  - DEPRESSION [None]
  - HYSTERECTOMY [None]
  - INSOMNIA [None]
